FAERS Safety Report 5513163-1 (Version None)
Quarter: 2007Q4

REPORT INFORMATION
  Report Type: 
  Country: None (occurrence: None)
  Receive Date: 20071112
  Receipt Date: 20070321
  Transmission Date: 20080405
  Serious: No
  Sender: FDA-Public Use
  Company Number: US-BRISTOL-MYERS SQUIBB COMPANY-13721071

PATIENT
  Age: 42 Year
  Sex: Male
  Weight: 77 kg

DRUGS (6)
  1. SUSTIVA [Suspect]
     Dates: start: 20040601, end: 20070305
  2. ATRIPLA [Suspect]
     Dates: start: 20070305, end: 20070317
  3. APRESOLINE [Concomitant]
  4. PROTONIX [Concomitant]
  5. AMBIEN [Concomitant]
  6. FLONASE [Concomitant]

REACTIONS (1)
  - HEPATIC ENZYME INCREASED [None]
